FAERS Safety Report 20583777 (Version 1)
Quarter: 2022Q1

REPORT INFORMATION
  Report Type: Spontaneous
  Country: US (occurrence: US)
  Receive Date: 20220311
  Receipt Date: 20220311
  Transmission Date: 20220423
  Serious: Yes (Other)
  Sender: FDA-Public Use
  Company Number: US-JNJFOC-20220304133

PATIENT
  Age: 41 Year
  Sex: Male
  Weight: 82.628 kg

DRUGS (1)
  1. TREMFYA [Suspect]
     Active Substance: GUSELKUMAB
     Indication: Psoriasis
     Route: 065

REACTIONS (5)
  - Metabolic surgery [Unknown]
  - Device defective [Unknown]
  - Needle issue [Unknown]
  - Product dose omission issue [Unknown]
  - Skin atrophy [Unknown]

NARRATIVE: CASE EVENT DATE: 20220301
